FAERS Safety Report 4732518-6 (Version None)
Quarter: 2005Q3

REPORT INFORMATION
  Report Type: 
  Country: None (occurrence: None)
  Receive Date: 20050803
  Receipt Date: 20040304
  Transmission Date: 20060218
  Serious: Yes (Death)
  Sender: FDA-Public Use
  Company Number: JP-GLAXOSMITHKLINE-B0325847A

PATIENT
  Age: 34 Year
  Sex: Male

DRUGS (3)
  1. RELENZA [Suspect]
     Indication: INFLUENZA
     Dosage: 2U PER DAY
     Route: 055
     Dates: start: 20040107, end: 20040107
  2. SULPYRINE [Concomitant]
     Route: 030
     Dates: start: 20040107, end: 20040107
  3. LIZPION [Concomitant]
     Route: 030
     Dates: start: 20040107, end: 20040107

REACTIONS (1)
  - CARDIAC FAILURE [None]
